FAERS Safety Report 9816896 (Version 1)
Quarter: 2014Q1

REPORT INFORMATION
  Report Type: Spontaneous
  Country: US (occurrence: US)
  Receive Date: 20140114
  Receipt Date: 20140114
  Transmission Date: 20141002
  Serious: No
  Sender: FDA-Public Use
  Company Number: US-ENDO PHARMACEUTICALS INC.-PERC20130067

PATIENT
  Age: 82 Year
  Sex: Female

DRUGS (2)
  1. PERCOCET 10MG/325MG [Suspect]
     Indication: PAIN
     Dosage: 40/1300 MG
     Route: 048
     Dates: start: 20130505, end: 201305
  2. PERCOCET 10MG/325MG [Suspect]
     Dosage: 20/650 MG
     Route: 048
     Dates: start: 201305

REACTIONS (3)
  - Somnolence [Not Recovered/Not Resolved]
  - Nausea [Not Recovered/Not Resolved]
  - Drug ineffective [Not Recovered/Not Resolved]
